FAERS Safety Report 4487583-0 (Version None)
Quarter: 2004Q4

REPORT INFORMATION
  Report Type: 
  Country: None (occurrence: None)
  Receive Date: 20041027
  Receipt Date: 20041027
  Transmission Date: 20050328
  Serious: Yes (Disabling)
  Sender: FDA-Public Use
  Company Number: None

PATIENT
  Age: 80 Year
  Sex: Male
  Weight: 89.8122 kg

DRUGS (1)
  1. VISUDYNE [Suspect]
     Dosage: SINGLE DOSE
     Dates: start: 20001128, end: 20001128

REACTIONS (5)
  - BLINDNESS [None]
  - DIFFICULTY IN WALKING [None]
  - EYE DISORDER [None]
  - IMPAIRED DRIVING ABILITY [None]
  - SCAR [None]
